FAERS Safety Report 6710405-1 (Version None)
Quarter: 2010Q2

REPORT INFORMATION
  Report Type: 
  Country: None (occurrence: None)
  Receive Date: 20100420
  Receipt Date: 20100421
  Transmission Date: 20101027
  Serious: Yes (Hospitalization)
  Sender: FDA-Public Use
  Company Number: SPV1-2010-00761

PATIENT
  Age: 58 Year
  Sex: Male

DRUGS (1)
  1. FOSRENOL [Suspect]
     Indication: HYPERPHOSPHATAEMIA
     Dosage: 3000 MG, TOTAL DAILY DOSE, ORAL
     Route: 048
     Dates: start: 20080201, end: 20080101

REACTIONS (3)
  - ENTEROCOCCAL SEPSIS [None]
  - PRODUCT SOLUBILITY ABNORMAL [None]
  - X-RAY ABNORMAL [None]
